FAERS Safety Report 5236538-7 (Version None)
Quarter: 2007Q1

REPORT INFORMATION
  Report Type: 
  Country: None (occurrence: None)
  Receive Date: 20070208
  Receipt Date: 20070201
  Transmission Date: 20070707
  Serious: Yes (Congenital Anomaly)
  Sender: FDA-Public Use
  Company Number: 152499ISR

PATIENT

DRUGS (1)
  1. FLUOXETINE [Suspect]
     Dosage: 20 MG (20 MG, 1 IN 1 D) TRANSPLACENTAL
     Route: 064
     Dates: start: 20060606, end: 20061020

REACTIONS (2)
  - DRUG EXPOSURE DURING PREGNANCY [None]
  - GASTROSCHISIS [None]
